FAERS Safety Report 21176201 (Version 3)
Quarter: 2022Q3

REPORT INFORMATION
  Report Type: Report from Study
  Country: US (occurrence: US)
  Receive Date: 20220805
  Receipt Date: 20220907
  Transmission Date: 20221027
  Serious: Yes (Hospitalization)
  Sender: FDA-Public Use
  Company Number: US-NOVARTISPH-NVSC2022US176578

PATIENT
  Sex: Female

DRUGS (2)
  1. PIQRAY [Suspect]
     Active Substance: ALPELISIB
     Indication: Breast cancer
     Dosage: 300 MG, QD
     Route: 048
     Dates: start: 202207
  2. PIQRAY [Suspect]
     Active Substance: ALPELISIB
     Dosage: 250 MG
     Route: 048

REACTIONS (6)
  - Aneurysm [Unknown]
  - Arthralgia [Unknown]
  - Peripheral artery occlusion [Unknown]
  - Vein collapse [Unknown]
  - Pain in extremity [Unknown]
  - Hyperglycaemia [Unknown]
